FAERS Safety Report 20079361 (Version 1)
Quarter: 2021Q4

REPORT INFORMATION
  Report Type: Spontaneous
  Country: FR (occurrence: FR)
  Receive Date: 20211117
  Receipt Date: 20211117
  Transmission Date: 20220303
  Serious: Yes (Hospitalization, Congenital Anomaly, Other)
  Sender: FDA-Public Use
  Company Number: FR-ABBVIE-21K-056-4159288-00

PATIENT
  Age: 9 Month
  Sex: Male
  Weight: 3 kg

DRUGS (1)
  1. VALPROATE SODIUM [Suspect]
     Active Substance: VALPROATE SODIUM
     Indication: Maternal exposure timing unspecified
     Route: 064

REACTIONS (37)
  - Hypotonia [Unknown]
  - Foetal heart rate deceleration abnormality [Unknown]
  - Foetal distress syndrome [Unknown]
  - Consciousness fluctuating [Unknown]
  - Congenital infection [Unknown]
  - Streptococcal sepsis [Unknown]
  - Petit mal epilepsy [Unknown]
  - Dysmorphism [Unknown]
  - Hyperthermia [Unknown]
  - General physical health deterioration [Unknown]
  - Pallor [Unknown]
  - Moaning [Unknown]
  - Tachypnoea [Unknown]
  - Cerebral ventricle dilatation [Unknown]
  - Strabismus [Unknown]
  - Tooth malformation [Unknown]
  - Scoliosis [Unknown]
  - Talipes [Unknown]
  - Pectus excavatum [Unknown]
  - Speech disorder developmental [Unknown]
  - Developmental coordination disorder [Unknown]
  - Executive dysfunction [Unknown]
  - Dyspraxia [Unknown]
  - Dysgraphia [Unknown]
  - Micrographia [Unknown]
  - Change in sustained attention [Unknown]
  - Colour blindness [Unknown]
  - Dysphagia [Unknown]
  - Viral infection [Unknown]
  - Astigmatism [Unknown]
  - Hypermetropia [Unknown]
  - Apathy [Unknown]
  - Developmental delay [Unknown]
  - Neurodevelopmental disorder [Unknown]
  - Disturbance in attention [Unknown]
  - Rash [Unknown]
  - Foetal exposure during pregnancy [Unknown]

NARRATIVE: CASE EVENT DATE: 19981009
